FAERS Safety Report 10708054 (Version 2)
Quarter: 2015Q1

REPORT INFORMATION
  Report Type: Spontaneous
  Country: US (occurrence: US)
  Receive Date: 20150113
  Receipt Date: 20150313
  Transmission Date: 20150721
  Serious: No
  Sender: FDA-Public Use
  Company Number: US-PFIZER INC-2015006574

PATIENT
  Age: 55 Year
  Sex: Female

DRUGS (2)
  1. FLECTOR [Suspect]
     Active Substance: DICLOFENAC EPOLAMINE
     Indication: JOINT INJURY
     Dosage: UNK
     Dates: start: 20141111
  2. FLECTOR [Suspect]
     Active Substance: DICLOFENAC EPOLAMINE
     Indication: BACK INJURY
     Dosage: UNK
     Dates: end: 20150105

REACTIONS (2)
  - Product adhesion issue [Unknown]
  - Joint injury [Unknown]
